FAERS Safety Report 25268818 (Version 1)
Quarter: 2025Q2

REPORT INFORMATION
  Report Type: Report from Study
  Country: US (occurrence: US)
  Receive Date: 20250505
  Receipt Date: 20250505
  Transmission Date: 20250716
  Serious: Yes (Death, Hospitalization, Other)
  Sender: ALEXION PHARMACEUTICALS
  Company Number: US-AstraZeneca-CH-00853430A

PATIENT
  Age: 81 Year
  Weight: 104.31 kg

DRUGS (5)
  1. TEZEPELUMAB [Suspect]
     Active Substance: TEZEPELUMAB
     Indication: Asthma
     Dosage: 210 MILLIGRAM, Q4W
  2. TEZEPELUMAB [Suspect]
     Active Substance: TEZEPELUMAB
  3. ALBUTEROL [Concomitant]
     Active Substance: ALBUTEROL
     Route: 065
  4. MONTELUKAST [Concomitant]
     Active Substance: MONTELUKAST
     Route: 065
  5. TRELEGY ELLIPTA [Concomitant]
     Active Substance: FLUTICASONE FUROATE\UMECLIDINIUM BROMIDE\VILANTEROL TRIFENATATE
     Route: 065

REACTIONS (16)
  - Bronchospasm [Unknown]
  - Pulmonary congestion [Fatal]
  - Chronic obstructive pulmonary disease [Unknown]
  - Rhinitis allergic [Unknown]
  - Pneumonia [Unknown]
  - Oedema peripheral [Unknown]
  - Atrial fibrillation [Unknown]
  - Fall [Unknown]
  - Intentional dose omission [Unknown]
  - Nasal congestion [Unknown]
  - Cough [Unknown]
  - Chest discomfort [Unknown]
  - Therapy change [Unknown]
  - Post concussion syndrome [Unknown]
  - Hyponatraemia [Recovered/Resolved]
  - Weight decreased [Unknown]
